FAERS Safety Report 4352184-1 (Version None)
Quarter: 2004Q2

REPORT INFORMATION
  Report Type: 
  Country: None (occurrence: None)
  Receive Date: 20040428
  Receipt Date: 20040407
  Transmission Date: 20050107
  Serious: Yes (Other)
  Sender: FDA-Public Use
  Company Number: FR_040403911

PATIENT
  Age: 50 Year
  Sex: Male

DRUGS (2)
  1. PROZAC [Suspect]
     Dosage: 20MG/2 DAY
  2. NEURONTIN [Concomitant]

REACTIONS (1)
  - PLEURAL FIBROSIS [None]
